FAERS Safety Report 13652165 (Version 1)
Quarter: 2017Q2

REPORT INFORMATION
  Report Type: Report from Study
  Country: AT (occurrence: AT)
  Receive Date: 20170614
  Receipt Date: 20170614
  Transmission Date: 20170830
  Serious: Yes (Hospitalization)
  Sender: FDA-Public Use
  Company Number: AT-AMGEN-AUTCT2013075360

PATIENT
  Age: 66 Year
  Sex: Female
  Weight: 44 kg

DRUGS (19)
  1. LOVENOX [Concomitant]
     Active Substance: ENOXAPARIN SODIUM
     Dosage: 20 MG, UNK
     Route: 058
     Dates: start: 201210
  2. MYCOSTATIN [Concomitant]
     Active Substance: NYSTATIN
     Dosage: 5 ML, UNK
     Route: 048
     Dates: start: 20130903
  3. ZOFRAN [Concomitant]
     Active Substance: ONDANSETRON HYDROCHLORIDE
     Dosage: UNK
     Dates: start: 2013
  4. HYDAL [Concomitant]
     Active Substance: HYDROMORPHONE HYDROCHLORIDE
     Dosage: 1.3 MG, UNK
     Route: 048
     Dates: start: 20131002
  5. ELOMEL [Concomitant]
     Dosage: 500 ML, UNK
     Route: 042
     Dates: start: 20130910, end: 20131108
  6. FORTECORTIN                        /00016001/ [Concomitant]
     Active Substance: DEXAMETHASONE
     Dosage: UNK
     Dates: start: 20130723
  7. NACL [Concomitant]
     Active Substance: SODIUM CHLORIDE
     Dosage: 250-500 ML, UNK
     Route: 042
     Dates: start: 20130723, end: 20131028
  8. SERACTIL [Concomitant]
     Active Substance: DEXIBUPROFEN
     Dosage: 300 MG, UNK
     Route: 048
     Dates: start: 20130916
  9. AMG 386 [Suspect]
     Active Substance: TREBANANIB
     Indication: OVARIAN CANCER
     Dosage: UNK
     Route: 065
     Dates: start: 20130723, end: 20131001
  10. PEGYLATED LIPOSOMAL DOXORUBICIN HYDROCHLORIDE [Concomitant]
     Active Substance: DOXORUBICIN HYDROCHLORIDE
     Dosage: UNK MG, UNK
     Route: 042
     Dates: start: 20130820, end: 20131028
  11. LASIX [Concomitant]
     Active Substance: FUROSEMIDE
     Dosage: 20 MG, UNK
     Route: 048
     Dates: start: 20130924
  12. PANTOLOC                           /01263204/ [Concomitant]
     Active Substance: PANTOPRAZOLE SODIUM
     Dosage: 20-40 MG, UNK
     Route: 048
     Dates: start: 20121005, end: 20131108
  13. MOVICOL [Concomitant]
     Active Substance: POLYETHYLENE GLYCOL 3350\POTASSIUM CHLORIDE\SODIUM BICARBONATE\SODIUM CHLORIDE
     Dosage: 1 UNK, UNK
     Route: 048
     Dates: start: 20131015
  14. EMEND [Concomitant]
     Active Substance: APREPITANT
     Dosage: 80-125 MG, UNK
     Route: 048
     Dates: start: 20130723
  15. MUNDISAL [Concomitant]
     Dosage: 1 UNK, UNK
     Route: 048
     Dates: start: 20130903
  16. PERIOLIMEL [Concomitant]
     Dosage: 40 TO 1500 ML, UNK
     Route: 042
     Dates: start: 20130910, end: 20131022
  17. PASPERTIN                          /00041902/ [Concomitant]
     Active Substance: METOCLOPRAMIDE HYDROCHLORIDE
     Dosage: 1 UNK, UNK
     Route: 048
     Dates: start: 20130724
  18. ULCOMETIN                          /00397401/ [Concomitant]
     Dosage: 1 UNK, UNK
     Route: 042
     Dates: start: 20130723
  19. DIBONDRIN [Concomitant]
     Active Substance: DIPHENHYDRAMINE HYDROCHLORIDE
     Dosage: 1 UNK, UNK
     Route: 042
     Dates: start: 20130723

REACTIONS (1)
  - Ascites [Recovered/Resolved]

NARRATIVE: CASE EVENT DATE: 20131022
